FAERS Safety Report 20135518 (Version 1)
Quarter: 2021Q4

REPORT INFORMATION
  Report Type: Spontaneous
  Country: US (occurrence: US)
  Receive Date: 20211201
  Receipt Date: 20211201
  Transmission Date: 20220303
  Serious: No
  Sender: FDA-Public Use
  Company Number: US-ELI_LILLY_AND_COMPANY-US202111010808

PATIENT
  Age: 65 Year
  Sex: Male

DRUGS (2)
  1. ETESEVIMAB [Suspect]
     Active Substance: ETESEVIMAB
     Indication: COVID-19
     Dosage: 700 MG, UNKNOWN
     Route: 065
     Dates: start: 20211122
  2. BAMLANIVIMAB [Suspect]
     Active Substance: BAMLANIVIMAB
     Indication: COVID-19
     Dosage: 1400 MG, UNKNOWN
     Route: 065
     Dates: start: 20211122

REACTIONS (3)
  - Accidental underdose [Unknown]
  - Accidental overdose [Unknown]
  - Product name confusion [Unknown]

NARRATIVE: CASE EVENT DATE: 20211122
